FAERS Safety Report 8253823-5 (Version None)
Quarter: 2012Q2

REPORT INFORMATION
  Report Type: 
  Country: None (occurrence: None)
  Receive Date: 20120402
  Receipt Date: 20120314
  Transmission Date: 20120825
  Serious: No
  Sender: FDA-Public Use
  Company Number: US-AMGEN-USASP2012016764

PATIENT
  Age: 26 Year
  Sex: Female

DRUGS (1)
  1. ENBREL [Suspect]
     Indication: ANKYLOSING SPONDYLITIS
     Dosage: UNK
     Dates: start: 20120101

REACTIONS (6)
  - SYNCOPE [None]
  - TUNNEL VISION [None]
  - PARAESTHESIA [None]
  - PAIN [None]
  - ABDOMINAL DISCOMFORT [None]
  - PYREXIA [None]
